FAERS Safety Report 9346958 (Version 2)
Quarter: 2013Q4

REPORT INFORMATION
  Report Type: Spontaneous
  Country: GB (occurrence: GB)
  Receive Date: 20130613
  Receipt Date: 20131023
  Transmission Date: 20140711
  Serious: Yes (Other)
  Sender: FDA-Public Use
  Company Number: GB-TEVA-410784ISR

PATIENT
  Age: 64 Year
  Sex: Female

DRUGS (1)
  1. METOPROLOL [Suspect]
     Indication: HYPERTENSION
     Route: 048
     Dates: start: 20130513, end: 20130521

REACTIONS (3)
  - Tongue blistering [Recovering/Resolving]
  - Glossodynia [Recovering/Resolving]
  - Burning sensation [Recovered/Resolved]
